FAERS Safety Report 12335794 (Version 1)
Quarter: 2016Q2

REPORT INFORMATION
  Report Type: Report from Study
  Country: CO (occurrence: CO)
  Receive Date: 20160505
  Receipt Date: 20160505
  Transmission Date: 20160815
  Serious: Yes (Death, Other)
  Sender: FDA-Public Use
  Company Number: CO-AMGEN-COLSL2016057321

PATIENT
  Age: 62 Year
  Sex: Male

DRUGS (1)
  1. KYPROLIS [Suspect]
     Active Substance: CARFILZOMIB
     Indication: PLASMA CELL MYELOMA
     Dosage: QWK
     Route: 042
     Dates: start: 20151201

REACTIONS (1)
  - Death [Fatal]

NARRATIVE: CASE EVENT DATE: 20160411
